FAERS Safety Report 21937071 (Version 18)
Quarter: 2023Q4

REPORT INFORMATION
  Report Type: Spontaneous
  Country: CA (occurrence: CA)
  Receive Date: 20230201
  Receipt Date: 20231211
  Transmission Date: 20240110
  Serious: Yes (Hospitalization, Other)
  Sender: FDA-Public Use
  Company Number: CA-PFIZER INC-202300025852

PATIENT
  Age: 31 Year
  Sex: Female
  Weight: 64 kg

DRUGS (8)
  1. ABRILADA [Suspect]
     Active Substance: ADALIMUMAB-AFZB
     Indication: Colitis ulcerative
     Dosage: 1 DF, WEEK 0: 160MG, WEEK 2: 80MG, THEN 40 MG EVERY OTHER WEEK
     Route: 058
     Dates: start: 20230119, end: 20230216
  2. ABRILADA [Suspect]
     Active Substance: ADALIMUMAB-AFZB
     Dosage: 1 DF, WEEK 0: 160MG, WEEK 2: 80MG, THEN 40 MG EVERY OTHER WEEK
     Route: 058
     Dates: start: 20230216
  3. ABRILADA [Suspect]
     Active Substance: ADALIMUMAB-AFZB
     Dosage: 40 MG, WEEKLY
     Route: 058
     Dates: start: 20230224, end: 2023
  4. ABRILADA [Suspect]
     Active Substance: ADALIMUMAB-AFZB
     Dosage: 1 DF, WEEKLY (4 DOSES OF 160MG IN WEEKLY DOSE THEN MAINTENANCE AT 40MG WEEKLY)
     Route: 058
     Dates: start: 20230306, end: 2023
  5. ABRILADA [Suspect]
     Active Substance: ADALIMUMAB-AFZB
     Dosage: 80 MG, WEEKLY
     Route: 058
     Dates: start: 2023
  6. FOLIC ACID [Concomitant]
     Active Substance: FOLIC ACID
     Dosage: UNK
  7. PREDNISONE [Concomitant]
     Active Substance: PREDNISONE
     Dosage: 1 DF, DOSAGE INFO: UNKNOWN
     Route: 065
     Dates: start: 20230109
  8. MINERALS\VITAMINS [Concomitant]
     Active Substance: MINERALS\VITAMINS
     Dosage: UNK

REACTIONS (10)
  - Pain [Unknown]
  - Haemorrhage [Recovered/Resolved]
  - Clostridium difficile infection [Recovered/Resolved]
  - Therapeutic response shortened [Unknown]
  - Injection site pain [Unknown]
  - Fatigue [Unknown]
  - Condition aggravated [Recovering/Resolving]
  - Maternal exposure during pregnancy [Unknown]
  - Off label use [Unknown]
  - Off label use [Unknown]

NARRATIVE: CASE EVENT DATE: 20230101
